FAERS Safety Report 15133626 (Version 5)
Quarter: 2019Q2

REPORT INFORMATION
  Report Type: Report from Study
  Country: US (occurrence: US)
  Receive Date: 20180712
  Receipt Date: 20190606
  Transmission Date: 20190711
  Serious: Yes (Hospitalization)
  Sender: FDA-Public Use
  Company Number: US-EISAI MEDICAL RESEARCH-EC-2018-039399

PATIENT
  Age: 45 Year
  Sex: Female
  Weight: 55.1 kg

DRUGS (13)
  1. ALLEGRA [Concomitant]
     Active Substance: FEXOFENADINE HYDROCHLORIDE
  2. ERIBULIN [Suspect]
     Active Substance: ERIBULIN
     Indication: BREAST CANCER METASTATIC
     Route: 041
     Dates: start: 20171228, end: 20180705
  3. INVANZ [Concomitant]
     Active Substance: ERTAPENEM SODIUM
  4. ONDANSETRON [Concomitant]
     Active Substance: ONDANSETRON
  5. OMEGA 3 FATTY ACIDS [Concomitant]
     Active Substance: OMEGA-3 FATTY ACIDS
  6. ATIVAN [Concomitant]
     Active Substance: LORAZEPAM
  7. PROCHLORPERAZINE. [Concomitant]
     Active Substance: PROCHLORPERAZINE
  8. TRAMADOL. [Concomitant]
     Active Substance: TRAMADOL
  9. ESTER-C BIOFLAVONOIDS [Concomitant]
  10. PRISTIQ EXTENDED-RELEASE [Concomitant]
     Active Substance: DESVENLAFAXINE SUCCINATE
  11. IMITREX [Concomitant]
     Active Substance: SUMATRIPTAN SUCCINATE
  12. MUPIROCIN. [Concomitant]
     Active Substance: MUPIROCIN
  13. PEMBROLIZUMAB. [Suspect]
     Active Substance: PEMBROLIZUMAB
     Indication: BREAST CANCER METASTATIC
     Route: 041
     Dates: start: 20171228, end: 20180705

REACTIONS (3)
  - Pneumonia [Recovered/Resolved]
  - Pericardial effusion [Recovered/Resolved]
  - Pericardial effusion malignant [Not Recovered/Not Resolved]

NARRATIVE: CASE EVENT DATE: 20180424
